FAERS Safety Report 11937106 (Version 2)
Quarter: 2016Q1

REPORT INFORMATION
  Report Type: Report from Study
  Country: AU (occurrence: AU)
  Receive Date: 20160121
  Receipt Date: 20160126
  Transmission Date: 20160526
  Serious: Yes (Other)
  Sender: FDA-Public Use
  Company Number: AU-ABBVIE-16P-008-1537058-00

PATIENT
  Age: 29 Year
  Sex: Female

DRUGS (37)
  1. HYDROCORTISONE. [Concomitant]
     Active Substance: HYDROCORTISONE
     Indication: CROHN^S DISEASE
     Route: 042
     Dates: start: 20090819, end: 20090824
  2. METHOTREXATE [Concomitant]
     Active Substance: METHOTREXATE
     Route: 048
     Dates: start: 20111205, end: 20120305
  3. PANADOL [Concomitant]
     Active Substance: ACETAMINOPHEN
     Indication: PAIN
     Dates: start: 20120306, end: 20120315
  4. OXYCODONE [Concomitant]
     Active Substance: OXYCODONE
     Indication: PAIN
     Dosage: 5-15 MG
     Dates: start: 20120306, end: 20120321
  5. DROPERIDOL. [Concomitant]
     Active Substance: DROPERIDOL
     Indication: PROCEDURAL NAUSEA
     Route: 042
     Dates: start: 20120312, end: 20120312
  6. MULTIVITAMINS [Concomitant]
     Active Substance: VITAMINS
     Indication: NUTRITIONAL SUPPLEMENTATION
     Dates: start: 2008
  7. HYDROCORTISONE. [Concomitant]
     Active Substance: HYDROCORTISONE
     Route: 041
     Dates: start: 20120306, end: 20120312
  8. PREDNISOLONE. [Concomitant]
     Active Substance: PREDNISOLONE
     Dosage: REDUCING REGIME
     Dates: start: 20120315, end: 20120426
  9. TEMAZEPAM. [Concomitant]
     Active Substance: TEMAZEPAM
     Indication: SEDATIVE THERAPY
     Dosage: NOCTE
     Dates: start: 20120307, end: 20120309
  10. ENOXAPARIN [Concomitant]
     Active Substance: ENOXAPARIN
     Indication: THROMBOSIS PROPHYLAXIS
     Route: 058
     Dates: start: 20120310, end: 20120315
  11. HUMIRA [Suspect]
     Active Substance: ADALIMUMAB
     Indication: CROHN^S DISEASE
     Dosage: BASELINE
     Route: 058
     Dates: start: 20090325, end: 20090325
  12. PREDNISONE. [Concomitant]
     Active Substance: PREDNISONE
     Indication: CROHN^S DISEASE
     Dates: start: 20111130, end: 20120306
  13. KETAMINE [Concomitant]
     Active Substance: KETAMINE
     Indication: PAIN
     Dosage: 200 MGN 100 ML INFUSION, CONTINUOUS INFUSION
     Dates: start: 20120310, end: 20120313
  14. MAGMIN [Concomitant]
     Active Substance: MAGNESIUM ASPARTATE
     Indication: MINERAL SUPPLEMENTATION
     Dates: start: 20120313, end: 20120314
  15. MERCAPTOPURINE. [Concomitant]
     Active Substance: MERCAPTOPURINE
     Dates: start: 20090610, end: 20090617
  16. MERCAPTOPURINE. [Concomitant]
     Active Substance: MERCAPTOPURINE
     Dates: start: 20090819, end: 20101122
  17. HYDROCORTISONE. [Concomitant]
     Active Substance: HYDROCORTISONE
     Route: 042
     Dates: start: 20120312, end: 20120315
  18. METHOTREXATE [Concomitant]
     Active Substance: METHOTREXATE
     Route: 058
     Dates: start: 20110608, end: 20111130
  19. OXYCODONE [Concomitant]
     Active Substance: OXYCODONE
     Indication: ANALGESIC THERAPY
     Dates: start: 20120306, end: 20120320
  20. METHOTREXATE [Concomitant]
     Active Substance: METHOTREXATE
     Indication: CROHN^S DISEASE
     Dates: start: 20101122, end: 20110601
  21. TRAMADOL. [Concomitant]
     Active Substance: TRAMADOL
     Indication: PAIN
     Dosage: 50-100 MG
     Dates: start: 20120306, end: 20120314
  22. FENTANYL. [Concomitant]
     Active Substance: FENTANYL
     Indication: PROCEDURAL PAIN
     Dosage: PCA IV
     Dates: start: 20120310, end: 20120313
  23. ROPIVACAINE [Concomitant]
     Active Substance: ROPIVACAINE
     Indication: PROCEDURAL PAIN
     Dosage: 400 MG IN 200 ML, LOCAL INFUSION TO RECTUS SHEATH
     Dates: start: 20120310, end: 20120313
  24. ENOXAPARIN [Concomitant]
     Active Substance: ENOXAPARIN
     Indication: THROMBOSIS PROPHYLAXIS
  25. MERCAPTOPURINE. [Concomitant]
     Active Substance: MERCAPTOPURINE
     Indication: CROHN^S DISEASE
  26. FOLIC ACID. [Concomitant]
     Active Substance: FOLIC ACID
     Indication: VITAMIN SUPPLEMENTATION
     Dates: start: 2008, end: 20120306
  27. COLAZIDE [Concomitant]
     Indication: DIARRHOEA
     Dates: start: 2008, end: 201112
  28. PREDNISOLONE. [Concomitant]
     Active Substance: PREDNISOLONE
     Indication: CROHN^S DISEASE
     Dosage: 40 MG REDUCING REGIME
     Dates: start: 20120313
  29. POTASSIUM [Concomitant]
     Active Substance: POTASSIUM
     Indication: MINERAL SUPPLEMENTATION
     Dosage: 20-30 ML
     Dates: start: 20120313, end: 20120314
  30. HUMIRA [Suspect]
     Active Substance: ADALIMUMAB
     Dosage: WEEK 2
     Route: 058
  31. HUMIRA [Suspect]
     Active Substance: ADALIMUMAB
     Route: 058
     Dates: end: 20111130
  32. HYDROCORTISONE. [Concomitant]
     Active Substance: HYDROCORTISONE
     Indication: CROHN^S DISEASE
     Dates: start: 20120306, end: 20120311
  33. PREDNISOLONE. [Concomitant]
     Active Substance: PREDNISOLONE
     Indication: CROHN^S DISEASE
     Dates: start: 20090821, end: 201003
  34. FLAGYL [Concomitant]
     Active Substance: METRONIDAZOLE\METRONIDAZOLE HYDROCHLORIDE
     Indication: INFECTION
     Dates: start: 20090610, end: 20090617
  35. TROPISETRON [Concomitant]
     Active Substance: TROPISETRON
     Indication: NAUSEA
     Route: 042
     Dates: start: 20120310, end: 20120312
  36. HYDROCORTISONE. [Concomitant]
     Active Substance: HYDROCORTISONE
     Dates: start: 20120312, end: 20120313
  37. PREDNISONE. [Concomitant]
     Active Substance: PREDNISONE
     Indication: CROHN^S DISEASE
     Dates: start: 20100824

REACTIONS (1)
  - Cholangiocarcinoma [Not Recovered/Not Resolved]

NARRATIVE: CASE EVENT DATE: 20150515
